FAERS Safety Report 8225066 (Version 2)
Quarter: 2013Q2

REPORT INFORMATION
  Report Type: Report from Study
  Country: VE (occurrence: VE)
  Receive Date: 20111103
  Receipt Date: 20130430
  Transmission Date: 20140414
  Serious: Yes (Other)
  Sender: FDA-Public Use
  Company Number: PHHY2011VE95711

PATIENT
  Age: 73 Year
  Sex: Female

DRUGS (11)
  1. ACLASTA [Suspect]
     Indication: OSTEOPOROSIS
     Dosage: 5 MG, ANNUAL
     Route: 042
     Dates: start: 2009
  2. ACLASTA [Suspect]
     Dosage: 5 MG, ONCE A YEAR
     Route: 042
     Dates: start: 20100501
  3. ACLASTA [Suspect]
     Dosage: 5 MG, ONCE A YEAR
     Route: 042
     Dates: start: 20110602
  4. ZALDIAR [Concomitant]
     Indication: PAIN
     Dosage: UKN MG, QD
     Route: 048
     Dates: start: 2009
  5. DOLAK [Concomitant]
     Indication: PAIN
     Dosage: 100 MG, DAILY SOS
     Route: 030
     Dates: start: 2009
  6. PREDNISONE [Concomitant]
     Indication: ASTHMA
     Dosage: 5 MG, QD
     Route: 048
  7. ROCALTROL [Concomitant]
     Indication: OSTEOPOROSIS
     Dosage: 0.5 MG, DAILY
     Route: 048
     Dates: start: 2009
  8. BERODUAL [Concomitant]
     Indication: ASTHMA
     Dosage: 0.02 MG, DAILY
  9. VANNAIR [Concomitant]
     Indication: ASTHMA
     Dosage: UNK MG, DAILY
  10. PROFENID [Concomitant]
     Indication: PAIN
     Dosage: 100 MG, DAILY SOS
     Route: 030
     Dates: start: 2009, end: 2011
  11. GASTRONOL [Concomitant]
     Indication: GASTROINTESTINAL DISORDER
     Dosage: 20 MG, DAILY
     Route: 048

REACTIONS (4)
  - Asthmatic crisis [Recovered/Resolved]
  - Thrombosis [Recovered/Resolved]
  - Decreased appetite [Recovered/Resolved]
  - Insomnia [Recovered/Resolved]
